FAERS Safety Report 6408547-3 (Version None)
Quarter: 2009Q4

REPORT INFORMATION
  Report Type: 
  Country: None (occurrence: None)
  Receive Date: 20091019
  Receipt Date: 20090707
  Transmission Date: 20100525
  Serious: Yes (Hospitalization)
  Sender: FDA-Public Use
  Company Number: US-JNJFOC-20090703002

PATIENT
  Age: 83 Year
  Sex: Male
  Weight: 69.2 kg

DRUGS (4)
  1. DECITABINE (DECITABINE) LYOPHILIZED POWDER [Suspect]
     Indication: ACUTE MYELOID LEUKAEMIA
     Dosage: 20 MG/M2, IN 1 DAY, INTRAVENOUS
     Route: 042
     Dates: start: 20090604, end: 20090613
  2. DECITABINE (DECITABINE) LYOPHILIZED POWDER [Suspect]
     Indication: ACUTE MYELOID LEUKAEMIA
     Dosage: 20 MG/M2, IN 1 DAY, INTRAVENOUS
     Route: 042
     Dates: start: 20090507
  3. BORTEZOMIB [Suspect]
     Indication: ACUTE MYELOID LEUKAEMIA
     Dosage: 1.3 MG/M2, INTRAVENOUS
     Route: 042
     Dates: start: 20090604, end: 20090618
  4. BORTEZOMIB [Suspect]
     Indication: ACUTE MYELOID LEUKAEMIA
     Dosage: 1.3 MG/M2, INTRAVENOUS
     Route: 042
     Dates: start: 20090507

REACTIONS (12)
  - BACTERIAL INFECTION [None]
  - BLOOD CULTURE POSITIVE [None]
  - CHEST PAIN [None]
  - DIVERTICULAR PERFORATION [None]
  - DIVERTICULITIS [None]
  - LOBAR PNEUMONIA [None]
  - LUNG CONSOLIDATION [None]
  - NEUTROPENIA [None]
  - PERIDIVERTICULAR ABSCESS [None]
  - PYREXIA [None]
  - SPUTUM CULTURE POSITIVE [None]
  - STREPTOCOCCAL INFECTION [None]
